FAERS Safety Report 5938038-5 (Version None)
Quarter: 2008Q4

REPORT INFORMATION
  Report Type: 
  Country: None (occurrence: None)
  Receive Date: 20081031
  Receipt Date: 20081025
  Transmission Date: 20090506
  Serious: Yes (Hospitalization)
  Sender: FDA-Public Use
  Company Number: US-AMGEN-QUU315957

PATIENT
  Sex: Male

DRUGS (4)
  1. ENBREL [Suspect]
     Indication: RHEUMATOID ARTHRITIS
  2. METHOTREXATE [Concomitant]
  3. CORTICOSTEROIDS [Concomitant]
  4. PNEUMOCOCCAL VACCINE [Concomitant]

REACTIONS (1)
  - HOSPITALISATION [None]
